FAERS Safety Report 7635887-2 (Version None)
Quarter: 2011Q3

REPORT INFORMATION
  Report Type: 
  Country: None (occurrence: None)
  Receive Date: 20110726
  Receipt Date: 20110714
  Transmission Date: 20111222
  Serious: Yes (Other)
  Sender: FDA-Public Use
  Company Number: US-JNJFOC-20110611547

PATIENT
  Age: 60 Year
  Sex: Female
  Weight: 71.67 kg

DRUGS (1)
  1. LISTERINE TOTAL CARE PLUS WHITENING [Suspect]
     Indication: DENTAL CARE
     Dosage: AS DIRECTED
     Route: 048
     Dates: start: 20110607, end: 20110617

REACTIONS (4)
  - MOUTH HAEMORRHAGE [None]
  - AGEUSIA [None]
  - ORAL DISCOMFORT [None]
  - TONGUE HAEMORRHAGE [None]
